FAERS Safety Report 9815245 (Version 2)
Quarter: 2014Q1

REPORT INFORMATION
  Report Type: Report from Study
  Country: BE (occurrence: BE)
  Receive Date: 20140114
  Receipt Date: 20140206
  Transmission Date: 20141002
  Serious: Yes (Hospitalization)
  Sender: FDA-Public Use
  Company Number: BE-AMGEN-BELCT2014001924

PATIENT
  Age: 60 Year
  Sex: Female

DRUGS (5)
  1. ETANERCEPT [Suspect]
     Indication: RHEUMATOID ARTHRITIS
     Dosage: 25 MG, 2X/WEEK
     Route: 058
     Dates: start: 20031224
  2. INDOCID                            /00003801/ [Concomitant]
     Dosage: UNK
     Dates: start: 2003
  3. METHOTREXATE [Concomitant]
     Dosage: UNK
     Route: 048
     Dates: start: 2002
  4. DELTA-CORTRIL [Concomitant]
     Dosage: UNK
     Route: 048
     Dates: start: 2002
  5. TOLINDOL                           /00672001/ [Concomitant]
     Dosage: UNK
     Dates: start: 2003

REACTIONS (2)
  - Hyperthermia [Recovered/Resolved]
  - Decreased appetite [Recovered/Resolved]
